FAERS Safety Report 21331036 (Version 1)
Quarter: 2022Q3

REPORT INFORMATION
  Report Type: Spontaneous
  Country: FR (occurrence: FR)
  Receive Date: 20220914
  Receipt Date: 20220914
  Transmission Date: 20221027
  Serious: Yes (Hospitalization, Other)
  Sender: FDA-Public Use
  Company Number: FR-BoehringerIngelheim-2022-BI-191311

PATIENT
  Age: 2 Month
  Sex: Male

DRUGS (2)
  1. CLONIDINE HYDROCHLORIDE [Suspect]
     Active Substance: CLONIDINE HYDROCHLORIDE
     Indication: Withdrawal syndrome
     Dosage: 0.15 MG/ML,
     Route: 042
     Dates: start: 20211113, end: 20211115
  2. CLONIDINE HYDROCHLORIDE [Suspect]
     Active Substance: CLONIDINE HYDROCHLORIDE
     Dosage: 46 ?G/8H VS 4,6 ?G/8H
     Route: 042

REACTIONS (4)
  - Bradycardia [Recovered/Resolved]
  - Incorrect dose administered [Recovered/Resolved]
  - Somnolence neonatal [Recovered/Resolved]
  - Hypotension [Recovered/Resolved]

NARRATIVE: CASE EVENT DATE: 20211113
